FAERS Safety Report 7935975-7 (Version None)
Quarter: 2011Q4

REPORT INFORMATION
  Report Type: 
  Country: None (occurrence: None)
  Receive Date: 20111123
  Receipt Date: 20111117
  Transmission Date: 20120403
  Serious: Yes (Death, Hospitalization, Other)
  Sender: FDA-Public Use
  Company Number: US-ASTELLAS-2011US006515

PATIENT
  Sex: Female

DRUGS (6)
  1. IMURAN [Concomitant]
     Indication: IMMUNE SYSTEM DISORDER
     Dosage: 50 MG, BID
     Route: 048
  2. SIROLIMUS [Concomitant]
     Indication: IMMUNOSUPPRESSION
     Dosage: 1 MG, UID/QD
     Route: 048
  3. CIPROFLOXACIN [Concomitant]
     Indication: ANTIBIOTIC THERAPY
     Dosage: 500 MG, BID
     Route: 048
  4. ENALAPRIL MALEATE [Concomitant]
     Indication: BLOOD PRESSURE
     Dosage: 10 MG, UID/QD
     Route: 048
  5. PROGRAF [Suspect]
     Indication: LUNG TRANSPLANT
     Dosage: 3 MG, BID
     Route: 048
     Dates: start: 19990518, end: 20110201
  6. PREDNISONE [Concomitant]
     Indication: IMMUNOSUPPRESSION
     Dosage: 10 MG, UID/QD
     Route: 048

REACTIONS (4)
  - PSEUDOMONAS INFECTION [None]
  - PNEUMONIA [None]
  - LUNG TRANSPLANT REJECTION [None]
  - OFF LABEL USE [None]
